FAERS Safety Report 17459725 (Version 1)
Quarter: 2020Q1

REPORT INFORMATION
  Report Type: Spontaneous
  Country: US (occurrence: US)
  Receive Date: 20200212
  Receipt Date: 20200212
  Transmission Date: 20200409
  Serious: Yes (Death)
  Sender: FDA-Public Use
  Company Number: None

PATIENT
  Age: 64 Year

DRUGS (10)
  1. SUTENT [Suspect]
     Active Substance: SUNITINIB MALATE
     Indication: RENAL CANCER
     Route: 048
     Dates: start: 20191205
  2. XARELTO [Concomitant]
     Active Substance: RIVAROXABAN
  3. VICODIN [Concomitant]
     Active Substance: ACETAMINOPHEN\HYDROCODONE BITARTRATE
  4. ORDIVO [Concomitant]
  5. DEXAMETHASONE. [Concomitant]
     Active Substance: DEXAMETHASONE
  6. ARMOUR THYROID [Concomitant]
     Active Substance: THYROID, PORCINE
  7. YERVOY [Concomitant]
     Active Substance: IPILIMUMAB
  8. KEPPRA [Concomitant]
     Active Substance: LEVETIRACETAM
  9. ZOMETA [Concomitant]
     Active Substance: ZOLEDRONIC ACID
  10. A-HYDROCORT [Concomitant]
     Active Substance: HYDROCORTISONE SODIUM SUCCINATE

REACTIONS (1)
  - Death [None]
